FAERS Safety Report 11196574 (Version 1)
Quarter: 2015Q2

REPORT INFORMATION
  Report Type: Report from Study
  Country: US (occurrence: US)
  Receive Date: 20150617
  Receipt Date: 20150617
  Transmission Date: 20150821
  Serious: Yes (Other)
  Sender: FDA-Public Use
  Company Number: US-BAYER-2015-183136

PATIENT
  Age: 25 Year
  Sex: Female
  Weight: 108.84 kg

DRUGS (6)
  1. METFORMIN [Concomitant]
     Active Substance: METFORMIN HYDROCHLORIDE
     Indication: OBESITY
     Dosage: UNK
  2. METFORMIN [Concomitant]
     Active Substance: METFORMIN HYDROCHLORIDE
     Indication: INSULIN RESISTANCE
  3. SKYLA [Suspect]
     Active Substance: LEVONORGESTREL
     Indication: HYPERTENSION
  4. SKYLA [Suspect]
     Active Substance: LEVONORGESTREL
     Indication: GENITAL HAEMORRHAGE
     Dosage: 14 MCG/24HR, CONT
     Route: 015
     Dates: start: 20141016, end: 2015
  5. SKYLA [Suspect]
     Active Substance: LEVONORGESTREL
     Indication: OVARIAN CYST
  6. SKYLA [Suspect]
     Active Substance: LEVONORGESTREL
     Indication: MIGRAINE

REACTIONS (4)
  - Genital haemorrhage [Recovered/Resolved]
  - Off label use [None]
  - Vaginal haemorrhage [Recovered/Resolved]
  - Drug ineffective for unapproved indication [None]
